FAERS Safety Report 17880711 (Version 1)
Quarter: 2020Q2

REPORT INFORMATION
  Report Type: Spontaneous
  Country: TR (occurrence: TR)
  Receive Date: 20200610
  Receipt Date: 20200610
  Transmission Date: 20200714
  Serious: Yes (Other)
  Sender: FDA-Public Use
  Company Number: TR-PFIZER INC-2020223003

PATIENT
  Age: 40 Year
  Sex: Female
  Weight: 58 kg

DRUGS (1)
  1. ELELYSO [Suspect]
     Active Substance: TALIGLUCERASE ALFA
     Dosage: 60 UNITS / KG
     Dates: start: 20200605

REACTIONS (3)
  - Drug hypersensitivity [Unknown]
  - Dysphonia [Unknown]
  - Laryngeal oedema [Unknown]

NARRATIVE: CASE EVENT DATE: 2020
